FAERS Safety Report 14480786 (Version 1)
Quarter: 2018Q1

REPORT INFORMATION
  Report Type: Spontaneous
  Country: CN (occurrence: CN)
  Receive Date: 20180202
  Receipt Date: 20180202
  Transmission Date: 20180509
  Serious: Yes (Death, Hospitalization)
  Sender: FDA-Public Use
  Company Number: CN-PFIZER INC-2018044060

PATIENT
  Age: 77 Year
  Sex: Male
  Weight: 70 kg

DRUGS (2)
  1. NORVANCOMYCIN [Concomitant]
     Active Substance: NORVANCOMYCIN
     Indication: STAPHYLOCOCCAL INFECTION
     Dosage: 0.5 G, 3X/DAY
     Route: 041
     Dates: start: 20171207, end: 20171209
  2. FLUCONAZOLE. [Suspect]
     Active Substance: FLUCONAZOLE
     Indication: INFECTION
     Dosage: 0.4 G, 1X/DAY
     Route: 041
     Dates: start: 20171209, end: 20171210

REACTIONS (2)
  - Cardiac failure [Fatal]
  - Acute kidney injury [Fatal]

NARRATIVE: CASE EVENT DATE: 20171210
